FAERS Safety Report 5307450-X (Version None)
Quarter: 2007Q2

REPORT INFORMATION
  Report Type: 
  Country: None (occurrence: None)
  Receive Date: 20070425
  Receipt Date: 20070413
  Transmission Date: 20071010
  Serious: Yes (Other)
  Sender: FDA-Public Use
  Company Number: JP-ELI_LILLY_AND_COMPANY-JP200704001862

PATIENT
  Age: 57 Year
  Sex: Female

DRUGS (3)
  1. GEMZAR [Suspect]
     Indication: OVARIAN CANCER
     Route: 042
  2. TAXOTERE [Concomitant]
     Indication: OVARIAN CANCER
     Route: 065
  3. OXYCONTIN [Concomitant]
     Route: 065

REACTIONS (6)
  - ABNORMAL BEHAVIOUR [None]
  - BLOOD ALBUMIN DECREASED [None]
  - BLOOD CHOLINESTERASE DECREASED [None]
  - MEMORY IMPAIRMENT [None]
  - OEDEMA [None]
  - PORIOMANIA [None]
